FAERS Safety Report 5805509-1 (Version None)
Quarter: 2008Q3

REPORT INFORMATION
  Report Type: 
  Country: None (occurrence: None)
  Receive Date: 20080710
  Receipt Date: 20080701
  Transmission Date: 20090109
  Serious: Yes (Hospitalization)
  Sender: FDA-Public Use
  Company Number: US-AMGEN-QUU291794

PATIENT
  Sex: Male

DRUGS (3)
  1. ENBREL [Suspect]
     Indication: RHEUMATOID ARTHRITIS
     Route: 058
     Dates: start: 20050101
  2. METHOTREXATE [Concomitant]
  3. COUMADIN [Concomitant]

REACTIONS (4)
  - CORONARY ARTERIAL STENT INSERTION [None]
  - INJECTION SITE HAEMATOMA [None]
  - PLATELET COUNT DECREASED [None]
  - PROCEDURAL COMPLICATION [None]
